FAERS Safety Report 18900714 (Version 1)
Quarter: 2021Q1

REPORT INFORMATION
  Report Type: Spontaneous
  Country: FR (occurrence: FR)
  Receive Date: 20210216
  Receipt Date: 20210216
  Transmission Date: 20210420
  Serious: Yes (Other)
  Sender: FDA-Public Use
  Company Number: NVSC2021FR034454

PATIENT
  Age: 83 Year
  Sex: Male
  Weight: 62 kg

DRUGS (1)
  1. CIPROFLOXACINE [Suspect]
     Active Substance: CIPROFLOXACIN
     Indication: ARTHRITIS INFECTIVE
     Dosage: UNK
     Route: 048
     Dates: start: 20201126, end: 20210123

REACTIONS (1)
  - Tendon disorder [Not Recovered/Not Resolved]

NARRATIVE: CASE EVENT DATE: 20210123
